FAERS Safety Report 21411824 (Version 1)
Quarter: 2022Q4

REPORT INFORMATION
  Report Type: Spontaneous
  Country: CN (occurrence: CN)
  Receive Date: 20221005
  Receipt Date: 20221005
  Transmission Date: 20230113
  Serious: Yes (Other)
  Sender: FDA-Public Use
  Company Number: CN-009507513-2210CHN000867

PATIENT
  Age: 74 Year
  Sex: Female

DRUGS (3)
  1. KEYTRUDA [Suspect]
     Active Substance: PEMBROLIZUMAB
     Indication: Neoplasm malignant
     Dosage: 200 MG, EVERY 21 DAYS
     Route: 041
     Dates: start: 20220826, end: 20220915
  2. LENVATINIB MESYLATE [Suspect]
     Active Substance: LENVATINIB MESYLATE
     Indication: Neoplasm malignant
     Dosage: FIRST CYCLE
     Route: 048
     Dates: start: 20220826, end: 20220826
  3. LENVATINIB MESYLATE [Suspect]
     Active Substance: LENVATINIB MESYLATE
     Dosage: SECOND CYCLE
     Route: 048
     Dates: start: 20220915, end: 20220915

REACTIONS (4)
  - Immune-mediated myocarditis [Recovering/Resolving]
  - Acute hepatic failure [Unknown]
  - Eyelid ptosis [Unknown]
  - Product use issue [Unknown]

NARRATIVE: CASE EVENT DATE: 20220915
